FAERS Safety Report 21668397 (Version 1)
Quarter: 2022Q4

REPORT INFORMATION
  Report Type: Spontaneous
  Country: US (occurrence: None)
  Receive Date: 20221129
  Receipt Date: 20221129
  Transmission Date: 20230113
  Serious: No
  Sender: FDA-Public Use
  Company Number: None

PATIENT
  Age: 46 Year
  Sex: Female
  Weight: 81.74 kg

DRUGS (3)
  1. PHENTERMINE [Suspect]
     Active Substance: PHENTERMINE
     Indication: Obesity
     Dosage: FREQUENCY : DAILY;?
     Dates: start: 20221117, end: 20221118
  2. PHENTERMINE [Suspect]
     Active Substance: PHENTERMINE
     Indication: Blood cholesterol increased
  3. PHENTERMINE [Suspect]
     Active Substance: PHENTERMINE
     Indication: Sleep apnoea syndrome

REACTIONS (4)
  - Palpitations [None]
  - Hypertension [None]
  - Anxiety [None]
  - Therapy cessation [None]
